FAERS Safety Report 11252618 (Version 5)
Quarter: 2015Q3

REPORT INFORMATION
  Report Type: Spontaneous
  Country: US (occurrence: US)
  Receive Date: 20150708
  Receipt Date: 20150924
  Transmission Date: 20151125
  Serious: Yes (Hospitalization, Other)
  Sender: FDA-Public Use
  Company Number: US-GLAXOSMITHKLINE-US2015GSK098267

PATIENT
  Age: 58 Year
  Sex: Female

DRUGS (3)
  1. TYKERB [Suspect]
     Active Substance: LAPATINIB DITOSYLATE
     Dosage: 500 MG, QD
     Route: 048
     Dates: start: 20150718
  2. TYKERB [Suspect]
     Active Substance: LAPATINIB DITOSYLATE
     Indication: BREAST CANCER
     Dosage: 1000 MG, QD
     Route: 048
     Dates: start: 20150701, end: 20150706
  3. TYKERB [Suspect]
     Active Substance: LAPATINIB DITOSYLATE
     Dosage: 1000 MG, QD
     Route: 048
     Dates: start: 20150701

REACTIONS (9)
  - Clostridium difficile infection [Unknown]
  - Drug dose omission [Unknown]
  - Abdominal pain lower [Unknown]
  - Rash [Not Recovered/Not Resolved]
  - Appendix disorder [Unknown]
  - Diarrhoea [Not Recovered/Not Resolved]
  - Diverticulitis [Unknown]
  - Nausea [Unknown]
  - Weight increased [Unknown]

NARRATIVE: CASE EVENT DATE: 20150703
